FAERS Safety Report 13688791 (Version 1)
Quarter: 2017Q2

REPORT INFORMATION
  Report Type: Spontaneous
  Country: US (occurrence: US)
  Receive Date: 20170623
  Receipt Date: 20170623
  Transmission Date: 20170830
  Serious: Yes (Disabling)
  Sender: FDA-Public Use
  Company Number: None

PATIENT
  Age: 55 Year
  Sex: Male
  Weight: 90 kg

DRUGS (1)
  1. LORAZEPAM. [Suspect]
     Active Substance: LORAZEPAM
     Indication: ANXIETY
     Route: 048
     Dates: start: 20090825, end: 20100104

REACTIONS (5)
  - Suicidal behaviour [None]
  - Anxiety [None]
  - Drug withdrawal syndrome [None]
  - Constipation [None]
  - Impaired work ability [None]

NARRATIVE: CASE EVENT DATE: 20090825
